FAERS Safety Report 7638526-X (Version None)
Quarter: 2011Q3

REPORT INFORMATION
  Report Type: 
  Country: None (occurrence: None)
  Receive Date: 20110727
  Receipt Date: 20110715
  Transmission Date: 20111222
  Serious: Yes (Other)
  Sender: FDA-Public Use
  Company Number: PHBS2003BR05086

PATIENT
  Age: 37 Year
  Sex: Male
  Weight: 78 kg

DRUGS (7)
  1. DIAZEPAM [Concomitant]
     Indication: ANXIETY
     Dosage: 0.5 TABLET/D
     Route: 048
  2. CALCIUM ACETATE [Concomitant]
     Route: 048
  3. VITAMIN B COMPLEX CAP [Concomitant]
     Dosage: 3 TABLETS/D
     Route: 048
     Dates: end: 20031001
  4. OMEPRAZOLE [Concomitant]
     Indication: GASTRITIS
     Route: 048
  5. ZYPREXA [Concomitant]
  6. CLOZAPINE [Suspect]
     Indication: SCHIZOPHRENIA
     Dosage: 450 MG/D
     Route: 048
     Dates: start: 20000101
  7. CLOZAPINE [Concomitant]

REACTIONS (6)
  - LIMB DISCOMFORT [None]
  - TONGUE DISORDER [None]
  - DIARRHOEA [None]
  - PLATELET COUNT ABNORMAL [None]
  - OESOPHAGITIS [None]
  - GASTRITIS [None]
